FAERS Safety Report 13875211 (Version 2)
Quarter: 2018Q3

REPORT INFORMATION
  Report Type: Report from Study
  Country: US (occurrence: US)
  Receive Date: 20170816
  Receipt Date: 20180907
  Transmission Date: 20181010
  Serious: Yes (Death, Life-Threatening, Hospitalization, Other)
  Sender: FDA-Public Use
  Company Number: US-BRISTOL-MYERS SQUIBB COMPANY-BMS-2017-073686

PATIENT
  Age: 92 Year
  Sex: Male
  Weight: 56.56 kg

DRUGS (2)
  1. NIVOLUMAB [Suspect]
     Active Substance: NIVOLUMAB
     Indication: NON-SMALL CELL LUNG CANCER
     Dosage: 240 MG, Q3WK
     Route: 042
     Dates: start: 20170726, end: 20170810
  2. DECITABINE. [Suspect]
     Active Substance: DECITABINE
     Indication: NON-SMALL CELL LUNG CANCER
     Dosage: 1 DF=15MG/750MG (CONSEC DAY)
     Route: 048
     Dates: start: 20170726, end: 20170810

REACTIONS (3)
  - Dehydration [Not Recovered/Not Resolved]
  - Supraventricular tachycardia [Not Recovered/Not Resolved]
  - Malignant neoplasm progression [Fatal]

NARRATIVE: CASE EVENT DATE: 20170813
